FAERS Safety Report 8365491-2 (Version None)
Quarter: 2012Q2

REPORT INFORMATION
  Report Type: 
  Country: None (occurrence: None)
  Receive Date: 20120516
  Receipt Date: 20120511
  Transmission Date: 20120825
  Serious: Yes (Hospitalization, Other)
  Sender: FDA-Public Use
  Company Number: US-BAYER-2012-028705

PATIENT
  Age: 31 Year
  Sex: Female
  Weight: 89.796 kg

DRUGS (5)
  1. YAZ [Suspect]
     Dosage: UNK
     Dates: start: 20070701
  2. ALBUTEROL [Concomitant]
  3. LEVOTHYROXINE SODIUM [Concomitant]
     Dosage: 75 MCG, UNK
  4. YASMIN [Suspect]
     Dosage: UNK
     Dates: start: 20070701
  5. DROSPIRENONE AND ETHINYL ESTRADIOL [Suspect]
     Dosage: UNK
     Dates: start: 20070701

REACTIONS (10)
  - CHOLECYSTITIS CHRONIC [None]
  - INJURY [None]
  - PAIN IN EXTREMITY [None]
  - VEIN PAIN [None]
  - EMOTIONAL DISTRESS [None]
  - GALLBLADDER DISORDER [None]
  - PAIN [None]
  - GENERAL PHYSICAL HEALTH DETERIORATION [None]
  - ANXIETY [None]
  - HYPOAESTHESIA [None]
